FAERS Safety Report 8246716-0 (Version None)
Quarter: 2012Q1

REPORT INFORMATION
  Report Type: 
  Country: None (occurrence: None)
  Receive Date: 20120316
  Receipt Date: 20090428
  Transmission Date: 20120608
  Serious: Yes (Other)
  Sender: FDA-Public Use
  Company Number: PHEH2009US04092

PATIENT
  Age: 70 Year
  Sex: Female
  Weight: 73 kg

DRUGS (3)
  1. CLONIDINE [Concomitant]
  2. TEKTURNA [Suspect]
     Indication: HYPERTENSION
     Dosage: 300 MG/DAY
     Dates: start: 20090312
  3. CELEBREX [Suspect]

REACTIONS (4)
  - OEDEMA [None]
  - DYSPNOEA [None]
  - LIP OEDEMA [None]
  - ANGIOEDEMA [None]
